FAERS Safety Report 9682522 (Version 1)
Quarter: 2013Q4

REPORT INFORMATION
  Report Type: Spontaneous
  Country: US (occurrence: US)
  Receive Date: 20131112
  Receipt Date: 20131112
  Transmission Date: 20140711
  Serious: No
  Sender: FDA-Public Use
  Company Number: US-009507513-1311USA001840

PATIENT
  Sex: 0

DRUGS (1)
  1. GANIRELIX ACETATE INJECTION [Suspect]
     Dosage: 250/0.5 MCRG/ML
     Dates: start: 2013

REACTIONS (1)
  - Premature ovulation [Unknown]
